FAERS Safety Report 15735664 (Version 1)
Quarter: 2018Q4

REPORT INFORMATION
  Report Type: Spontaneous
  Country: RO (occurrence: RO)
  Receive Date: 20181218
  Receipt Date: 20181218
  Transmission Date: 20190205
  Serious: Yes (Hospitalization)
  Sender: FDA-Public Use
  Company Number: RO-PFIZER INC-2018513785

PATIENT
  Age: 62 Year
  Sex: Female

DRUGS (1)
  1. CEFTAZIDIME. [Suspect]
     Active Substance: CEFTAZIDIME
     Indication: RESPIRATORY DISORDER
     Dosage: UNK

REACTIONS (4)
  - Syncope [Unknown]
  - Cardiac arrest [Unknown]
  - Torsade de pointes [Unknown]
  - Long QT syndrome [Unknown]
